FAERS Safety Report 5006294-6 (Version None)
Quarter: 2006Q2

REPORT INFORMATION
  Report Type: 
  Country: None (occurrence: None)
  Receive Date: 20060516
  Receipt Date: 20060503
  Transmission Date: 20061013
  Serious: Yes (Other)
  Sender: FDA-Public Use
  Company Number: US-2006-010956

PATIENT
  Age: 52 Year
  Sex: Female

DRUGS (3)
  1. FLUDARA [Suspect]
     Indication: CHRONIC LYMPHOCYTIC LEUKAEMIA
     Dosage: 6 COURSES, INTRAVENOUS
     Route: 042
     Dates: start: 19980101
  2. CYCLOSPHAMIDE (CYCLOSPHAMIDE) [Suspect]
     Indication: CHRONIC LYMPHOCYTIC LEUKAEMIA
     Dates: start: 19990501, end: 19990101
  3. RITUXIMAB [Concomitant]

REACTIONS (5)
  - CHRONIC LYMPHOCYTIC LEUKAEMIA [None]
  - CHRONIC MYELOID LEUKAEMIA [None]
  - DISEASE RECURRENCE [None]
  - PANCYTOPENIA [None]
  - STEM CELL TRANSPLANT [None]
